FAERS Safety Report 7419666-7 (Version None)
Quarter: 2011Q2

REPORT INFORMATION
  Report Type: 
  Country: None (occurrence: None)
  Receive Date: 20110418
  Receipt Date: 20110406
  Transmission Date: 20111010
  Serious: No
  Sender: FDA-Public Use
  Company Number: US-JNJFOC-20110403751

PATIENT
  Sex: Male
  Weight: 104.33 kg

DRUGS (1)
  1. FENTANYL-100 [Suspect]
     Indication: BACK PAIN
     Dosage: 2 OF 75 UG/HR PATCHES
     Route: 062

REACTIONS (2)
  - PRODUCT QUALITY ISSUE [None]
  - WRONG TECHNIQUE IN DRUG USAGE PROCESS [None]
